FAERS Safety Report 5159099-X (Version None)
Quarter: 2006Q4

REPORT INFORMATION
  Report Type: 
  Country: None (occurrence: None)
  Receive Date: 20061128
  Receipt Date: 20061121
  Transmission Date: 20070319
  Serious: Yes (Hospitalization)
  Sender: FDA-Public Use
  Company Number: GB-BOEHRINGER INGELHEIM PHARMACEUTICALS, INC.-2006-UK-04724UK

PATIENT

DRUGS (1)
  1. DIXARIT [Suspect]

REACTIONS (2)
  - ABDOMINAL PAIN [None]
  - VOMITING PROJECTILE [None]
